FAERS Safety Report 5300827-8 (Version None)
Quarter: 2007Q2

REPORT INFORMATION
  Report Type: 
  Country: None (occurrence: None)
  Receive Date: 20070418
  Receipt Date: 20070312
  Transmission Date: 20071010
  Serious: Yes (Hospitalization, Other)
  Sender: FDA-Public Use
  Company Number: US-SANOFI-SYNTHELABO-A03200602217

PATIENT
  Age: 27 Year
  Sex: Male

DRUGS (8)
  1. AMBIEN [Suspect]
     Indication: SLEEP DISORDER
     Route: 048
     Dates: start: 20051019, end: 20060404
  2. AMBIEN [Suspect]
     Indication: SLEEP PARALYSIS
     Route: 048
     Dates: start: 20051019, end: 20060404
  3. AVELOX [Concomitant]
     Dosage: UNK
     Route: 065
  4. BENZONATATE [Concomitant]
     Dosage: UNK
     Route: 065
  5. MEDROL [Concomitant]
     Route: 065
  6. PROPECIA [Concomitant]
     Dosage: UNK
     Route: 048
  7. LAMICTAL [Concomitant]
     Dosage: UNK
     Route: 048
  8. ALCOHOL [Suspect]
     Dosage: UNK
     Route: 048

REACTIONS (3)
  - AMNESIA [None]
  - CHILD ABUSE [None]
  - SLEEP WALKING [None]
